FAERS Safety Report 4984528-1 (Version None)
Quarter: 2006Q2

REPORT INFORMATION
  Report Type: 
  Country: None (occurrence: None)
  Receive Date: 20060421
  Receipt Date: 20060405
  Transmission Date: 20061013
  Serious: Yes (Other)
  Sender: FDA-Public Use
  Company Number: GXKR2006JP01951

PATIENT
  Age: 74 Year
  Sex: Female
  Weight: 50 kg

DRUGS (10)
  1. IMIPRAMINE [Suspect]
     Indication: DEPRESSION
     Dosage: 20 MG, QD
  2. PROPOFOL [Suspect]
     Indication: ANAESTHESIA
     Dosage: 100 MG
  3. MEPIVACAINE HCL [Suspect]
     Indication: ANAESTHESIA
     Dosage: 10 ML
  4. LOFEPRAMINE(LOFEPRAMINE) [Suspect]
     Indication: DEPRESSION
     Dosage: 75 MG, QD
  5. SEVOFLURANE [Suspect]
     Dosage: 1%; 0.3%
  6. LIDOCAINE [Concomitant]
  7. EPINEPHRINE [Concomitant]
  8. VECURONIUM (VECURONIUM) [Concomitant]
  9. NITROUS OXIDE W/ OXYGEN [Concomitant]
  10. FENTANYL [Concomitant]

REACTIONS (4)
  - ADRENAL INSUFFICIENCY [None]
  - CENTRAL VENOUS PRESSURE DECREASED [None]
  - DRUG HYPERSENSITIVITY [None]
  - HYPOTENSION [None]
